FAERS Safety Report 10274473 (Version 2)
Quarter: 2014Q3

REPORT INFORMATION
  Report Type: Spontaneous
  Country: US (occurrence: US)
  Receive Date: 20140702
  Receipt Date: 20140711
  Transmission Date: 20150326
  Serious: No
  Sender: FDA-Public Use
  Company Number: US-PFIZER INC-2014177288

PATIENT
  Sex: Female

DRUGS (4)
  1. NIFEDIPINE. [Suspect]
     Active Substance: NIFEDIPINE
     Dosage: UNK
  2. HYDROXYZINE HYDROCHLORIDE. [Suspect]
     Active Substance: HYDROXYZINE HYDROCHLORIDE
  3. VISTARIL [Suspect]
     Active Substance: HYDROXYZINE PAMOATE
     Dosage: UNK
  4. LIPITOR [Suspect]
     Active Substance: ATORVASTATIN CALCIUM
     Dosage: UNK

REACTIONS (1)
  - Drug hypersensitivity [Unknown]
